FAERS Safety Report 4274279-3 (Version None)
Quarter: 2004Q1

REPORT INFORMATION
  Report Type: 
  Country: None (occurrence: None)
  Receive Date: 20040115
  Receipt Date: 20040106
  Transmission Date: 20041129
  Serious: No
  Sender: FDA-Public Use
  Company Number: 2004UW00210

PATIENT
  Sex: Male

DRUGS (1)
  1. CASODEX [Suspect]

REACTIONS (1)
  - TESTICULAR DISORDER [None]
